FAERS Safety Report 6301158-X (Version None)
Quarter: 2009Q3

REPORT INFORMATION
  Report Type: 
  Country: None (occurrence: None)
  Receive Date: 20090807
  Receipt Date: 20090727
  Transmission Date: 20100115
  Serious: Yes (Life-Threatening, Hospitalization, Other)
  Sender: FDA-Public Use
  Company Number: DE-PFIZER INC-2009226723

PATIENT
  Age: 69 Year

DRUGS (5)
  1. SILDENAFIL CITRATE [Suspect]
     Indication: PULMONARY ARTERIAL HYPERTENSION
     Dosage: 20 MG, 3X/DAY
     Route: 048
  2. THELIN [Concomitant]
     Indication: PULMONARY ARTERIAL HYPERTENSION
     Dosage: UNK
     Dates: start: 20090501
  3. PANTOZOL [Concomitant]
     Dosage: UNK
  4. TOREM [Concomitant]
     Dosage: UNK
  5. THIAMAZOLE [Concomitant]
     Indication: GOITRE

REACTIONS (4)
  - FATIGUE [None]
  - HAEMOLYTIC ANAEMIA [None]
  - INTERNATIONAL NORMALISED RATIO [None]
  - IRON DEFICIENCY [None]
